FAERS Safety Report 7528960-0 (Version None)
Quarter: 2011Q2

REPORT INFORMATION
  Report Type: 
  Country: None (occurrence: None)
  Receive Date: 20110607
  Receipt Date: 20110602
  Transmission Date: 20111010
  Serious: Yes (Other)
  Sender: FDA-Public Use
  Company Number: US-PFIZER INC-2011120331

PATIENT
  Sex: Female
  Weight: 109 kg

DRUGS (17)
  1. MELOXICAM [Concomitant]
     Indication: ARTHRITIS
     Dosage: UNK, 3X/DAY
  2. TOPAMAX [Concomitant]
     Dosage: 200 MG, UNK
     Route: 048
  3. LYRICA [Suspect]
     Indication: PAIN
  4. TRAZODONE [Concomitant]
     Dosage: UNK, 1X/DAY
  5. NOVOLOG [Concomitant]
     Indication: DIABETES MELLITUS
     Dosage: UNK
  6. SYMBICORT [Concomitant]
     Indication: ASTHMA
     Dosage: UNK
  7. HYDROXYZINE [Concomitant]
     Dosage: UNK
  8. INSULIN DETEMIR [Concomitant]
     Indication: DIABETES MELLITUS
     Dosage: UNK
  9. CELEBREX [Suspect]
     Indication: ARTHRITIS
     Dosage: 200 MG, UNK
     Route: 048
  10. SKELAXIN [Concomitant]
     Indication: MUSCLE RELAXANT THERAPY
     Dosage: 800 MG, EVERY SIX HOURS
     Route: 048
  11. LYRICA [Suspect]
     Indication: FIBROMYALGIA
     Dosage: 50 MG, 4X/DAY
     Route: 048
     Dates: start: 20100101
  12. PLAVIX [Concomitant]
     Indication: ANTICOAGULANT THERAPY
     Dosage: UNK
     Route: 048
  13. LAMICTAL [Concomitant]
     Dosage: UNK
     Route: 048
  14. NIASPAN [Concomitant]
     Indication: BLOOD CHOLESTEROL ABNORMAL
     Dosage: 500 MG, UNK
     Route: 048
  15. SINGULAIR [Concomitant]
     Indication: HYPERSENSITIVITY
     Dosage: 10 MG, 1X/DAY
     Route: 048
  16. SINGULAIR [Concomitant]
     Indication: ASTHMA
  17. CYMBALTA [Concomitant]
     Dosage: 120 MG, 1X/DAY
     Route: 048

REACTIONS (5)
  - AMNESIA [None]
  - CEREBROVASCULAR ACCIDENT [None]
  - CHEST DISCOMFORT [None]
  - BLOOD PRESSURE SYSTOLIC INCREASED [None]
  - CHEST PAIN [None]
